FAERS Safety Report 16145285 (Version 2)
Quarter: 2019Q2

REPORT INFORMATION
  Report Type: Report from Study
  Country: FR (occurrence: FR)
  Receive Date: 20190402
  Receipt Date: 20190626
  Transmission Date: 20190711
  Serious: Yes (Death, Other)
  Sender: FDA-Public Use
  Company Number: FR-BAXTER-2017BAX041963

PATIENT
  Age: 65 Year
  Sex: Female
  Weight: 48 kg

DRUGS (13)
  1. ENDOXAN 50 MG, COMPRIM? ENROB? [Suspect]
     Active Substance: CYCLOPHOSPHAMIDE
     Indication: PRODUCT USED FOR UNKNOWN INDICATION
     Route: 048
     Dates: start: 20150428
  2. SIROLIMUS. [Suspect]
     Active Substance: SIROLIMUS
     Indication: PRODUCT USED FOR UNKNOWN INDICATION
     Route: 048
     Dates: start: 20150428
  3. SIROLIMUS. [Suspect]
     Active Substance: SIROLIMUS
     Dosage: LAST ADMINISTRATION OF SIROLIMUS
     Route: 048
     Dates: start: 20151109, end: 20151109
  4. METHOTREXATE SODIUM. [Suspect]
     Active Substance: METHOTREXATE SODIUM
     Indication: PRODUCT USED FOR UNKNOWN INDICATION
     Route: 048
     Dates: start: 20150428
  5. ENDOXAN 50 MG, COMPRIM? ENROB? [Suspect]
     Active Substance: CYCLOPHOSPHAMIDE
     Dosage: THE LAST ADMINISTRATION OF ENDOXAN
     Route: 048
     Dates: start: 20151105, end: 20151105
  6. METHOTREXATE SODIUM. [Suspect]
     Active Substance: METHOTREXATE SODIUM
     Dosage: LAST ADMINISTRATION BEFORE EVENT
     Route: 048
     Dates: start: 20151013, end: 20151013
  7. LEVOTHYROX [Concomitant]
     Active Substance: LEVOTHYROXINE
     Indication: HYPOTHYROIDISM
     Route: 048
  8. ZOLEDRONIC ACID [Suspect]
     Active Substance: ZOLEDRONIC ACID
     Indication: PRODUCT USED FOR UNKNOWN INDICATION
     Route: 042
     Dates: start: 20150428
  9. ZOLEDRONIC ACID [Suspect]
     Active Substance: ZOLEDRONIC ACID
     Dosage: LAST ADMINISTRATION BEFORE EVENT
     Route: 042
     Dates: start: 20150918, end: 20150918
  10. SIROLIMUS. [Suspect]
     Active Substance: SIROLIMUS
     Dosage: LAST ADMINISTRATION BEFORE EVENT
     Route: 048
     Dates: start: 20151013, end: 20151013
  11. METHOTREXATE SODIUM. [Suspect]
     Active Substance: METHOTREXATE SODIUM
     Dosage: LAST ADMINISTRATION OF METHOTREXATE
     Route: 048
     Dates: start: 20151018, end: 20151018
  12. ENDOXAN 50 MG, COMPRIM? ENROB? [Suspect]
     Active Substance: CYCLOPHOSPHAMIDE
     Dosage: LAST ADMINISTRATION BEFORE EVENT
     Route: 048
     Dates: start: 20151013, end: 20151013
  13. ZOLEDRONIC ACID [Suspect]
     Active Substance: ZOLEDRONIC ACID
     Dosage: LAST ADMINISTRATION OF ZOLEDRONIC ACID
     Route: 042
     Dates: start: 20151016, end: 20151016

REACTIONS (2)
  - Disease progression [Fatal]
  - Lymphopenia [Recovered/Resolved]

NARRATIVE: CASE EVENT DATE: 20151014
